FAERS Safety Report 5394039-X (Version None)
Quarter: 2007Q3

REPORT INFORMATION
  Report Type: 
  Country: None (occurrence: None)
  Receive Date: 20070723
  Receipt Date: 20070202
  Transmission Date: 20080115
  Serious: No
  Sender: FDA-Public Use
  Company Number: A0638143A

PATIENT
  Age: 62 Year
  Sex: Female

DRUGS (6)
  1. AVANDIA [Suspect]
     Dosage: 2MG PER DAY
     Route: 048
     Dates: start: 20060101
  2. LISINOPRIL [Concomitant]
  3. HYDROCHLOROTHIAZIDE [Concomitant]
  4. THYROID TAB [Concomitant]
  5. OS-CAL [Concomitant]
  6. CENTRUM [Concomitant]

REACTIONS (1)
  - FEELING ABNORMAL [None]
